FAERS Safety Report 21967492 (Version 1)
Quarter: 2023Q1

REPORT INFORMATION
  Report Type: Report from Study
  Country: CA (occurrence: CA)
  Receive Date: 20230208
  Receipt Date: 20230208
  Transmission Date: 20230418
  Serious: Yes (Other)
  Sender: FDA-Public Use
  Company Number: CA-MYLANLABS-2023M1013625

PATIENT
  Sex: Male

DRUGS (2)
  1. REVATIO [Suspect]
     Active Substance: SILDENAFIL CITRATE
     Indication: Pulmonary arterial hypertension
     Dosage: 20 MILLIGRAM, TID
     Route: 048
     Dates: start: 20230118
  2. REVATIO [Suspect]
     Active Substance: SILDENAFIL CITRATE
     Indication: Connective tissue disorder

REACTIONS (1)
  - Lung transplant [Unknown]
